FAERS Safety Report 17658865 (Version 2)
Quarter: 2020Q2

REPORT INFORMATION
  Report Type: Report from Study
  Country: US (occurrence: US)
  Receive Date: 20200413
  Receipt Date: 20200518
  Transmission Date: 20200713
  Serious: Yes (Hospitalization)
  Sender: FDA-Public Use
  Company Number: US-EMD SERONO-9156339

PATIENT
  Sex: Female

DRUGS (3)
  1. BACTRIM [Suspect]
     Active Substance: SULFAMETHOXAZOLE\TRIMETHOPRIM
     Indication: CELLULITIS
  2. REBIF [Suspect]
     Active Substance: INTERFERON BETA-1A
     Indication: MULTIPLE SCLEROSIS
     Route: 058
     Dates: start: 201908, end: 2020
  3. REBIF [Suspect]
     Active Substance: INTERFERON BETA-1A
     Route: 058
     Dates: start: 202003

REACTIONS (8)
  - Decreased appetite [Unknown]
  - Cellulitis [Recovered/Resolved]
  - Multiple sclerosis relapse [Unknown]
  - Compression fracture [Unknown]
  - Treatment noncompliance [Recovered/Resolved]
  - Diarrhoea [Unknown]
  - Nerve injury [Unknown]
  - Insurance issue [Recovered/Resolved]

NARRATIVE: CASE EVENT DATE: 2020
